FAERS Safety Report 7759002-X (Version None)
Quarter: 2011Q3

REPORT INFORMATION
  Report Type: 
  Country: None (occurrence: None)
  Receive Date: 20110915
  Receipt Date: 20110907
  Transmission Date: 20111222
  Serious: Yes (Hospitalization, Other)
  Sender: FDA-Public Use
  Company Number: ACO_26292_2011

PATIENT
  Age: 54 Year
  Sex: Female

DRUGS (15)
  1. BACLOFEN [Concomitant]
  2. AMPYRA [Suspect]
     Indication: GAIT DISTURBANCE
     Dosage: 10 MG, TWICE DAILY, ORAL
     Route: 048
     Dates: start: 20101103, end: 20110727
  3. PHENYTOIN [Suspect]
     Indication: PRODUCT USED FOR UNKNOWN INDICATION
     Dates: start: 20110101, end: 20110101
  4. ASPIRIN LOW (ACETYLSALICYLIC ACID) [Concomitant]
  5. ERGOCALCIFEROL [Concomitant]
  6. JUICE PLUS (AMYLASE, ASCORBIC ACID, CELLULASE, FOLIC ACID, LIPASE, PRO [Concomitant]
  7. TRAMADOL HCL [Concomitant]
  8. VERAPAMIL [Concomitant]
  9. CALCIUM CARBONATE [Concomitant]
  10. UROQID ACID (METHENAMINE MANDELATE, PHOSPHORIC ACID SODIUM) [Concomitant]
  11. ALLEGRA [Concomitant]
  12. DIAZEPAM [Concomitant]
  13. TRIAMTERENE AND HYDROCHLOROTHIAZIDE (HYDROCHLOROTHIAZIDE, TRIAMTERENE) [Concomitant]
  14. STOOL SOFTENER (DOCUSATE SODIUM) [Concomitant]
  15. BETASERON [Concomitant]

REACTIONS (10)
  - DRUG HYPERSENSITIVITY [None]
  - FEELING ABNORMAL [None]
  - DIZZINESS [None]
  - LOSS OF CONSCIOUSNESS [None]
  - RASH [None]
  - LETHARGY [None]
  - DISORIENTATION [None]
  - CYANOSIS [None]
  - EAR INFECTION [None]
  - CONVULSION [None]
